FAERS Safety Report 6868586-5 (Version None)
Quarter: 2010Q3

REPORT INFORMATION
  Report Type: 
  Country: None (occurrence: None)
  Receive Date: 20100722
  Receipt Date: 20081125
  Transmission Date: 20110219
  Serious: No
  Sender: FDA-Public Use
  Company Number: US-PFIZER INC-2008047295

PATIENT
  Sex: Female
  Weight: 41.28 kg

DRUGS (8)
  1. CHANTIX [Suspect]
     Indication: SMOKING CESSATION THERAPY
     Dates: start: 20080527
  2. WELCHOL [Concomitant]
  3. METFORMIN [Concomitant]
  4. VITAMIN D [Concomitant]
  5. CALCIUM [Concomitant]
  6. IBANDRONATE SODIUM [Concomitant]
  7. NAPROSYN [Concomitant]
     Indication: MUSCULOSKELETAL DISCOMFORT
  8. OMEPRAZOLE [Concomitant]

REACTIONS (3)
  - FEELING ABNORMAL [None]
  - INSOMNIA [None]
  - TACHYPHRENIA [None]
